FAERS Safety Report 9520846 (Version 1)
Quarter: 2013Q1

REPORT INFORMATION
  Report Type: Spontaneous
  Country: US (occurrence: None)
  Receive Date: 20130305
  Receipt Date: 20130305
  Transmission Date: 20140127
  Serious: Yes (Hospitalization, Other)
  Sender: FDA-Public Use
  Company Number: 163-21880-12031796

PATIENT
  Age: 79 Year
  Sex: Female

DRUGS (1)
  1. REVLIMID (LENALIDOMIDE) (25 MILLIGRAM, CAPSULES) [Suspect]
     Indication: PLASMA CELL MYELOMA
     Dosage: 25 MG, DAILY FOR 21 DAYS/THEN 7 DAYS OFF, PO
     Route: 048
     Dates: start: 20120224

REACTIONS (8)
  - Full blood count decreased [None]
  - Renal impairment [None]
  - Muscular weakness [None]
  - Muscle spasms [None]
  - Oral discomfort [None]
  - Abdominal pain [None]
  - Dry mouth [None]
  - Pruritus [None]
